FAERS Safety Report 5695345-1 (Version None)
Quarter: 2008Q2

REPORT INFORMATION
  Report Type: 
  Country: None (occurrence: None)
  Receive Date: 20080404
  Receipt Date: 20080328
  Transmission Date: 20081010
  Serious: Yes (Other)
  Sender: FDA-Public Use
  Company Number: GB-MERCK-0701GBR00128

PATIENT
  Age: 31 Year
  Sex: Female
  Weight: 58 kg

DRUGS (1)
  1. PROSCAR [Suspect]
     Route: 065

REACTIONS (3)
  - ADVERSE EVENT [None]
  - DRUG EXPOSURE DURING PREGNANCY [None]
  - TRANSMISSION OF DRUG VIA SEMEN [None]
